FAERS Safety Report 4767926-0 (Version None)
Quarter: 2005Q3

REPORT INFORMATION
  Report Type: 
  Country: None (occurrence: None)
  Receive Date: 20050913
  Receipt Date: 20050713
  Transmission Date: 20060218
  Serious: Yes (Life-Threatening, Hospitalization, Disabling, Other)
  Sender: FDA-Public Use
  Company Number: US-MERCK-0507USA01838

PATIENT
  Age: 40 Year
  Sex: Female

DRUGS (1)
  1. MAXALT [Suspect]
     Indication: MIGRAINE
     Route: 048
     Dates: start: 20050701, end: 20050701

REACTIONS (4)
  - ARTERIOSPASM CORONARY [None]
  - CONVULSION [None]
  - HEADACHE [None]
  - MYOCARDIAL INFARCTION [None]
